FAERS Safety Report 10080943 (Version 2)
Quarter: 2014Q2

REPORT INFORMATION
  Report Type: Spontaneous
  Country: US (occurrence: US)
  Receive Date: 20140416
  Receipt Date: 20140515
  Transmission Date: 20141212
  Serious: Yes (Other)
  Sender: FDA-Public Use
  Company Number: US-AMGEN INC.-USASP2014026136

PATIENT
  Age: 59 Year
  Sex: Female
  Weight: 48.98 kg

DRUGS (6)
  1. PROLIA [Suspect]
     Indication: OSTEOPOROSIS POSTMENOPAUSAL
     Dosage: UNK
     Route: 058
     Dates: start: 20130523
  2. FISH OIL [Concomitant]
  3. BABY ASPIRIN [Concomitant]
     Dosage: 81 MG, UNK
  4. CALCIUM [Concomitant]
  5. OXYBUTYNIN [Concomitant]
     Indication: HYPERTONIC BLADDER
     Dosage: 10 MG, QD
     Route: 048
  6. DIAZEPAM [Concomitant]
     Indication: SLEEP DISORDER
     Dosage: 10 MG, AS NECESSARY
     Route: 048

REACTIONS (2)
  - Spinal cord disorder [Recovering/Resolving]
  - Pain in extremity [Recovering/Resolving]
